FAERS Safety Report 14648924 (Version 1)
Quarter: 2018Q1

REPORT INFORMATION
  Report Type: Spontaneous
  Country: US (occurrence: US)
  Receive Date: 20180316
  Receipt Date: 20180316
  Transmission Date: 20180509
  Serious: Yes (Other)
  Sender: FDA-Public Use
  Company Number: US-PFIZER INC-2018102377

PATIENT
  Age: 75 Year
  Sex: Female

DRUGS (1)
  1. PREMARIN [Suspect]
     Active Substance: ESTROGENS, CONJUGATED
     Dosage: 0.625 MG, 1X/DAY
     Dates: start: 1982

REACTIONS (6)
  - Anxiety [Unknown]
  - Pain [Unknown]
  - Neoplasm malignant [Unknown]
  - Nervousness [Unknown]
  - Influenza like illness [Unknown]
  - Malaise [Unknown]
